FAERS Safety Report 24990833 (Version 2)
Quarter: 2025Q1

REPORT INFORMATION
  Report Type: Report from Study
  Country: CN (occurrence: CN)
  Receive Date: 20250220
  Receipt Date: 20250224
  Transmission Date: 20250409
  Serious: Yes (Other)
  Sender: PFIZER
  Company Number: CN-TAKEDA-2023TUS034115

PATIENT
  Age: 40 Year
  Sex: Female
  Weight: 60 kg

DRUGS (12)
  1. BRENTUXIMAB VEDOTIN [Suspect]
     Active Substance: BRENTUXIMAB VEDOTIN
     Indication: Hodgkin^s disease nodular sclerosis
     Route: 041
     Dates: start: 20230322
  2. EPIRUBICIN HYDROCHLORIDE [Suspect]
     Active Substance: EPIRUBICIN HYDROCHLORIDE
     Indication: Hodgkin^s disease nodular sclerosis
     Dosage: 57.4 MG, 1X/DAY
     Route: 042
     Dates: start: 20230322, end: 20230703
  3. VINDESINE [Suspect]
     Active Substance: VINDESINE
     Indication: Hodgkin^s disease nodular sclerosis
     Dosage: 4 MILLIGRAM, QD
     Route: 042
     Dates: start: 20230322, end: 20230703
  4. DACARBAZINE [Suspect]
     Active Substance: DACARBAZINE
     Indication: Hodgkin^s disease nodular sclerosis
     Dosage: 615 MILLIGRAM, QD
     Route: 042
     Dates: start: 20230322, end: 20230703
  5. DEXAMETHASONE [Concomitant]
     Active Substance: DEXAMETHASONE
     Indication: Prophylaxis
     Dosage: 5 MG, 1X/DAY
     Route: 042
     Dates: start: 20230322, end: 20230322
  6. PALONOSETRON HYDROCHLORIDE [Concomitant]
     Active Substance: PALONOSETRON HYDROCHLORIDE
     Indication: Prophylaxis of nausea and vomiting
     Dosage: 0.5 MG, 1X/DAY
     Route: 048
     Dates: start: 20230322
  7. LEUCOGEN [Concomitant]
     Active Substance: LEUCOGEN
     Indication: White blood cell count increased
     Dosage: 20 MG, 3X/DAY
     Route: 048
     Dates: start: 20230322
  8. CEFACLOR [Concomitant]
     Active Substance: CEFACLOR
     Indication: Prophylaxis
     Dosage: 375 MG, 2X/DAY
     Route: 048
     Dates: start: 20230322
  9. SULFAMETHOXAZOLE [Concomitant]
     Active Substance: SULFAMETHOXAZOLE
     Indication: Prophylaxis
     Dosage: 0.48 G, 1X/DAY
     Route: 048
     Dates: start: 20230322
  10. ACYCLOVIR [Concomitant]
     Active Substance: ACYCLOVIR
     Indication: Viral infection
     Dosage: 0.4 G, 2X/DAY
     Route: 048
     Dates: start: 20230322
  11. OMEPRAZOLE [Concomitant]
     Active Substance: OMEPRAZOLE
     Indication: Prophylaxis
     Dosage: 20 MG, 1X/DAY
     Route: 048
     Dates: start: 20230322
  12. RIVAROXABAN [Concomitant]
     Active Substance: RIVAROXABAN
     Indication: Anticoagulation drug level
     Dosage: 10 MG, 1X/DAY
     Route: 048
     Dates: start: 20230322

REACTIONS (3)
  - Myelosuppression [Unknown]
  - Hepatic failure [Unknown]
  - Neutrophil count decreased [Unknown]

NARRATIVE: CASE EVENT DATE: 20230418
